FAERS Safety Report 10086103 (Version 2)
Quarter: 2014Q2

REPORT INFORMATION
  Report Type: Spontaneous
  Country: LK (occurrence: None)
  Receive Date: 20140416
  Receipt Date: 20140512
  Transmission Date: 20141212
  Serious: Yes (Life-Threatening, Hospitalization)
  Sender: FDA-Public Use
  Company Number: AUR-APL-2014-04620

PATIENT
  Age: 75 Year
  Sex: Female

DRUGS (4)
  1. RISPERIDONE [Suspect]
     Indication: BIPOLAR DISORDER
     Dosage: 8 MG (4 MG, 2 IN 1 D)
  2. SODIUM VALPROATE (VALPROATE SODIUM) [Concomitant]
  3. BENZHEXOL (TRIHEXYPHENIDYL) [Concomitant]
  4. LORAZEPAM (LORAZEPAM) [Concomitant]

REACTIONS (20)
  - Agitation [None]
  - Poor quality sleep [None]
  - Dysarthria [None]
  - Extrapyramidal disorder [None]
  - Somnolence [None]
  - Dehydration [None]
  - Hypothermia [None]
  - Lower respiratory tract infection [None]
  - Productive cough [None]
  - Malnutrition [None]
  - Hypoglycaemia [None]
  - Adrenal insufficiency [None]
  - Hypothyroidism [None]
  - Diabetes mellitus [None]
  - Cerebrovascular accident [None]
  - Sepsis [None]
  - Shock [None]
  - Thermal burn [None]
  - Dermatitis exfoliative [None]
  - Coma [None]
